FAERS Safety Report 6099617-0 (Version None)
Quarter: 2009Q1

REPORT INFORMATION
  Report Type: 
  Country: None (occurrence: None)
  Receive Date: 20090303
  Receipt Date: 20081117
  Transmission Date: 20090719
  Serious: Yes (Other)
  Sender: FDA-Public Use
  Company Number: GB-ABBOTT-08P-167-0471716-00

PATIENT
  Sex: Female

DRUGS (1)
  1. ERYTHROMYCIN BASE [Suspect]
     Indication: ACNE
     Dosage: 250 MG TABS
     Route: 048
     Dates: start: 20061101, end: 20080201

REACTIONS (1)
  - HYPOACUSIS [None]
